FAERS Safety Report 9066741 (Version 1)
Quarter: 2013Q1

REPORT INFORMATION
  Report Type: Spontaneous
  Country: US (occurrence: US)
  Receive Date: 20130214
  Receipt Date: 20130214
  Transmission Date: 20140127
  Serious: Yes (Hospitalization)
  Sender: FDA-Public Use
  Company Number: US-GLAXOSMITHKLINE-A0996444A

PATIENT
  Age: 58 Year
  Sex: Male

DRUGS (1)
  1. AVANDIA [Suspect]
     Indication: DIABETES MELLITUS
     Dosage: 4MG TWICE PER DAY
     Route: 048

REACTIONS (12)
  - Myocardial infarction [Not Recovered/Not Resolved]
  - Stent placement [Unknown]
  - Swelling [Unknown]
  - Cardiovascular disorder [Unknown]
  - Leg amputation [Unknown]
  - Oedema [Unknown]
  - Incontinence [Unknown]
  - Dyspnoea [Unknown]
  - Disturbance in attention [Unknown]
  - Fatigue [Unknown]
  - Confusional state [Unknown]
  - Memory impairment [Unknown]
